FAERS Safety Report 17163137 (Version 1)
Quarter: 2019Q4

REPORT INFORMATION
  Report Type: Spontaneous
  Country: US (occurrence: US)
  Receive Date: 20191217
  Receipt Date: 20191217
  Transmission Date: 20200122
  Serious: Yes (Hospitalization, Other)
  Sender: FDA-Public Use
  Company Number: US-ALVOGEN-2019-ALVOGEN-102107

PATIENT
  Age: 62 Year
  Sex: Female

DRUGS (2)
  1. FLECAINIDE [Suspect]
     Active Substance: FLECAINIDE
     Indication: ATRIAL FIBRILLATION
     Dosage: 5 YEARS
  2. GARENOXACIN [Interacting]
     Active Substance: GARENOXACIN
     Indication: ENTERITIS INFECTIOUS

REACTIONS (7)
  - Cardiac failure congestive [Recovering/Resolving]
  - Drug interaction [Recovering/Resolving]
  - Cardio-respiratory arrest [Recovering/Resolving]
  - Atrial fibrillation [Recovered/Resolved]
  - Ventricular tachycardia [Recovered/Resolved]
  - Cardiac steatosis [Recovering/Resolving]
  - Toxicity to various agents [Recovering/Resolving]
